FAERS Safety Report 15354204 (Version 1)
Quarter: 2018Q4

REPORT INFORMATION
  Report Type: Spontaneous
  Country: US (occurrence: US)
  Receive Date: 20180906
  Receipt Date: 20180906
  Transmission Date: 20190204
  Serious: No
  Sender: FDA-Public Use
  Company Number: US-TEVA-2018-US-951744

PATIENT
  Sex: Male

DRUGS (1)
  1. BUDESONIDE ER [Suspect]
     Active Substance: BUDESONIDE
     Indication: COLITIS MICROSCOPIC
     Route: 065

REACTIONS (2)
  - Product prescribing error [Unknown]
  - Drug ineffective for unapproved indication [Unknown]
